FAERS Safety Report 14007571 (Version 1)
Quarter: 2017Q3

REPORT INFORMATION
  Report Type: Spontaneous
  Country: US (occurrence: US)
  Receive Date: 20170925
  Receipt Date: 20170925
  Transmission Date: 20171128
  Serious: Yes (Other)
  Sender: FDA-Public Use
  Company Number: US-TEVA-808033ACC

PATIENT
  Sex: Female

DRUGS (1)
  1. COPAXONE [Suspect]
     Active Substance: GLATIRAMER ACETATE
     Dosage: UNKNOWN FORM STRENGTH

REACTIONS (7)
  - Chills [Unknown]
  - Discomfort [Unknown]
  - Dysgeusia [Unknown]
  - Chest pain [Unknown]
  - Dyspnoea [Unknown]
  - Loss of consciousness [Unknown]
  - Dizziness [Unknown]
